FAERS Safety Report 4645216-4 (Version None)
Quarter: 2005Q2

REPORT INFORMATION
  Report Type: 
  Country: None (occurrence: None)
  Receive Date: 20050426
  Receipt Date: 20041203
  Transmission Date: 20051028
  Serious: Yes (Hospitalization)
  Sender: FDA-Public Use
  Company Number: GB-GLAXOSMITHKLINE-B0360368A

PATIENT
  Sex: Female

DRUGS (7)
  1. PAROXETINE HYDROCHLORIDE [Suspect]
     Indication: DEPRESSION
     Route: 065
  2. TEGRETOL [Concomitant]
     Indication: EPILEPSY
     Dosage: 1200MG PER DAY
     Route: 065
  3. LAMOTRIGINE [Concomitant]
     Indication: EPILEPSY
     Route: 065
  4. RISPERIDONE [Concomitant]
     Dosage: 4MG PER DAY
     Route: 065
  5. VENLAFAXINE [Concomitant]
     Dosage: 225MG PER DAY
     Route: 065
  6. CLOBAZAM [Concomitant]
     Dosage: 10MG AS REQUIRED
  7. LEVETIRACETAM [Concomitant]
     Indication: EPILEPSY
     Dosage: 1.5MG TWICE PER DAY

REACTIONS (11)
  - AGGRESSION [None]
  - AGITATION [None]
  - BALANCE DISORDER [None]
  - CONVULSION [None]
  - DEPRESSION [None]
  - DRUG WITHDRAWAL SYNDROME [None]
  - INSOMNIA [None]
  - OBSESSIVE THOUGHTS [None]
  - SUICIDAL IDEATION [None]
  - TENSION [None]
  - TREMOR [None]
